FAERS Safety Report 18651647 (Version 1)
Quarter: 2020Q4

REPORT INFORMATION
  Report Type: Spontaneous
  Country: US (occurrence: US)
  Receive Date: 20201223
  Receipt Date: 20201223
  Transmission Date: 20210114
  Serious: Yes (Death)
  Sender: FDA-Public Use
  Company Number: US-ROCHE-2737390

PATIENT
  Sex: Female

DRUGS (3)
  1. ACTEMRA [Suspect]
     Active Substance: TOCILIZUMAB
  2. ACTEMRA [Suspect]
     Active Substance: TOCILIZUMAB
  3. ACTEMRA [Suspect]
     Active Substance: TOCILIZUMAB
     Indication: OSTEOARTHRITIS
     Dosage: 162 MG EVERY 21 DAYS, ONGOING: YES
     Route: 058
     Dates: start: 20180628

REACTIONS (3)
  - Off label use [Unknown]
  - Intentional product use issue [Unknown]
  - Death [Fatal]
